FAERS Safety Report 20012358 (Version 2)
Quarter: 2021Q4

REPORT INFORMATION
  Report Type: Spontaneous
  Country: NL (occurrence: NL)
  Receive Date: 20211029
  Receipt Date: 20211112
  Transmission Date: 20220303
  Serious: Yes (Other)
  Sender: FDA-Public Use
  Company Number: NL-ORGANON-O2110NLD002359

PATIENT
  Age: 27 Year
  Sex: Female

DRUGS (1)
  1. ETONOGESTREL [Suspect]
     Active Substance: ETONOGESTREL
     Indication: Contraception
     Dosage: 1 DOSAGE FORM (IMPLANT)
     Route: 059

REACTIONS (5)
  - Device expulsion [Recovered/Resolved]
  - Complication of device insertion [Not Recovered/Not Resolved]
  - Adverse event [Unknown]
  - Product use issue [Unknown]
  - Circumstance or information capable of leading to device use error [Unknown]
